FAERS Safety Report 24747825 (Version 1)
Quarter: 2024Q4

REPORT INFORMATION
  Report Type: Spontaneous
  Country: US (occurrence: None)
  Receive Date: 20241218
  Receipt Date: 20241218
  Transmission Date: 20250115
  Serious: Yes (Hospitalization)
  Sender: Public
  Company Number: None

PATIENT
  Age: 69 Year
  Sex: Male
  Weight: 89.5 kg

DRUGS (1)
  1. CISPLATIN [Suspect]
     Active Substance: CISPLATIN
     Dates: end: 20240906

REACTIONS (5)
  - Mucosal inflammation [None]
  - Pseudomonas test positive [None]
  - Klebsiella test positive [None]
  - Ulcer [None]
  - Necrosis [None]

NARRATIVE: CASE EVENT DATE: 20241017
